FAERS Safety Report 7183704-X (Version None)
Quarter: 2010Q4

REPORT INFORMATION
  Report Type: 
  Country: None (occurrence: None)
  Receive Date: 20101220
  Receipt Date: 20101220
  Transmission Date: 20110411
  Serious: Yes (Hospitalization)
  Sender: FDA-Public Use
  Company Number: None

PATIENT
  Age: 83 Year
  Sex: Male
  Weight: 75.5 kg

DRUGS (12)
  1. COUMADIN [Suspect]
     Indication: AORTIC VALVE REPLACEMENT
     Dosage: 5 MG MF PO CHRONIC
     Route: 048
  2. PLAVIX [Suspect]
     Indication: AORTIC VALVE REPLACEMENT
     Dosage: 75 MG DAILY PO CHRONIC
     Route: 048
  3. ASPIRIN [Suspect]
     Indication: AORTIC VALVE REPLACEMENT
     Dosage: 4 MG TWTHSS PO CHRONIC
     Route: 048
  4. ZOCOR [Concomitant]
  5. LISINOPRIL [Concomitant]
  6. PROSCAR [Concomitant]
  7. FLOMAX [Concomitant]
  8. COREG [Concomitant]
  9. VIT D [Concomitant]
  10. CALTRATE [Concomitant]
  11. OMEGA [Concomitant]
  12. BRIMONIDINE OPTH [Concomitant]

REACTIONS (1)
  - GASTROINTESTINAL HAEMORRHAGE [None]
